FAERS Safety Report 9800133 (Version 3)
Quarter: 2015Q2

REPORT INFORMATION
  Report Type: Other
  Country: US (occurrence: US)
  Receive Date: 20140106
  Receipt Date: 20150611
  Transmission Date: 20150821
  Serious: Yes (Other)
  Sender: FDA-Public Use
  Company Number: US-ACORDA-ACO_101025_2013

PATIENT
  Sex: Male
  Weight: 99.77 kg

DRUGS (5)
  1. COPAXONE [Concomitant]
     Active Substance: GLATIRAMER ACETATE
     Indication: PRODUCT USED FOR UNKNOWN INDICATION
     Dosage: UNK,UNK
     Route: 065
  2. CHOLESTEROL MEDICATION [Concomitant]
     Active Substance: UNSPECIFIED INGREDIENT
     Indication: BLOOD CHOLESTEROL INCREASED
     Dosage: UNK
     Route: 065
  3. AMPYRA [Suspect]
     Active Substance: DALFAMPRIDINE
     Indication: GAIT DISTURBANCE
     Dosage: 10 MG, BID
     Route: 048
     Dates: start: 2013, end: 2013
  4. AMPYRA [Suspect]
     Active Substance: DALFAMPRIDINE
     Indication: MULTIPLE SCLEROSIS
     Dosage: 10 MG, Q 12 HRS
     Route: 048
     Dates: start: 20150419, end: 20150421
  5. ANTIHYPERTENSIVES [Concomitant]
     Active Substance: UNSPECIFIED INGREDIENT
     Indication: HYPERTENSION
     Dosage: UNK
     Route: 065

REACTIONS (10)
  - Drug ineffective [Unknown]
  - Dizziness [Unknown]
  - Thinking abnormal [Unknown]
  - Gait disturbance [Unknown]
  - Amnesia [Recovering/Resolving]
  - Fatigue [Unknown]
  - Affect lability [Recovering/Resolving]
  - Balance disorder [Unknown]
  - Condition aggravated [Unknown]
  - Visual field defect [Unknown]

NARRATIVE: CASE EVENT DATE: 2013
